FAERS Safety Report 9479035 (Version 1)
Quarter: 2013Q3

REPORT INFORMATION
  Report Type: Spontaneous
  Country: US (occurrence: US)
  Receive Date: 20130827
  Receipt Date: 20130827
  Transmission Date: 20140515
  Serious: Yes (Other)
  Sender: FDA-Public Use
  Company Number: US-BAYER-2013-099550

PATIENT
  Sex: Female

DRUGS (2)
  1. CIPROFLOXACIN [Suspect]
     Route: 063
  2. CIPROFLOXACIN [Suspect]
     Route: 063

REACTIONS (3)
  - Faeces hard [None]
  - Haematochezia [None]
  - Exposure during breast feeding [None]
